FAERS Safety Report 21058609 (Version 4)
Quarter: 2022Q4

REPORT INFORMATION
  Report Type: Spontaneous
  Country: JP (occurrence: JP)
  Receive Date: 20220708
  Receipt Date: 20221216
  Transmission Date: 20230112
  Serious: Yes (Life-Threatening, Hospitalization, Disabling, Other)
  Sender: FDA-Public Use
  Company Number: JP-ONO-2022JP018926

PATIENT
  Age: 54 Year
  Sex: Male

DRUGS (9)
  1. BRAFTOVI [Suspect]
     Active Substance: ENCORAFENIB
     Indication: Colon cancer
     Dosage: 200 MG
     Route: 048
     Dates: start: 20220527, end: 20220531
  2. BRAFTOVI [Suspect]
     Active Substance: ENCORAFENIB
     Dosage: 200 MG
     Route: 048
     Dates: start: 20220603, end: 20220704
  3. MEKTOVI [Suspect]
     Active Substance: BINIMETINIB
     Indication: Colon cancer
     Dosage: 30 MG, Q12H
     Route: 048
     Dates: start: 20220527, end: 20220531
  4. MEKTOVI [Suspect]
     Active Substance: BINIMETINIB
     Dosage: 30 MG, EVERYDAY
     Route: 048
     Dates: start: 20220601, end: 20220601
  5. MEKTOVI [Suspect]
     Active Substance: BINIMETINIB
     Dosage: 30 MG, Q12H
     Route: 048
     Dates: start: 20220603, end: 20220704
  6. ERBITUX [Suspect]
     Active Substance: CETUXIMAB
     Indication: Colon cancer
     Dosage: UNK
     Dates: start: 20220527, end: 20220701
  7. LANSOPRAZOLE [Suspect]
     Active Substance: LANSOPRAZOLE
     Dosage: UNK
  8. EDOXABAN TOSYLATE [Suspect]
     Active Substance: EDOXABAN TOSYLATE
     Dosage: UNK
     Dates: end: 20220601
  9. OXYGEN [Concomitant]
     Active Substance: OXYGEN
     Indication: Pneumonia
     Dosage: UNK (2-3 L)

REACTIONS (6)
  - Pancytopenia [Recovered/Resolved with Sequelae]
  - Acute respiratory failure [Recovered/Resolved]
  - Loss of consciousness [Recovered/Resolved]
  - Performance status decreased [Unknown]
  - Melaena [Recovered/Resolved]
  - Underdose [Unknown]

NARRATIVE: CASE EVENT DATE: 20220527
